FAERS Safety Report 9015241 (Version 1)
Quarter: 2013Q1

REPORT INFORMATION
  Report Type: Spontaneous
  Country: US (occurrence: None)
  Receive Date: 20130109
  Receipt Date: 20130109
  Transmission Date: 20140127
  Serious: Yes (Hospitalization)
  Sender: FDA-Public Use
  Company Number: None

PATIENT
  Sex: Female
  Weight: 52.2 kg

DRUGS (1)
  1. BENICAR [Suspect]

REACTIONS (4)
  - Lip swelling [None]
  - Swollen tongue [None]
  - Rash [None]
  - Pneumonia [None]
